FAERS Safety Report 5577545-4 (Version None)
Quarter: 2007Q4

REPORT INFORMATION
  Report Type: 
  Country: None (occurrence: None)
  Receive Date: 20071130
  Receipt Date: 20070921
  Transmission Date: 20080405
  Serious: No
  Sender: FDA-Public Use
  Company Number: US200709005127

PATIENT
  Age: 61 Year
  Sex: Female
  Weight: 90.7 kg

DRUGS (11)
  1. BYETTA [Suspect]
     Indication: INSULIN-REQUIRING TYPE II DIABETES MELLITUS
     Dosage: 5 UG, 2/D, SUBCUTANEOUS; 10 UG, 2/D, SUBCUTANEOUS; 10 UG, EACH EVENING, SUBCUTANEOUS
     Route: 058
     Dates: start: 20070128, end: 20070201
  2. BYETTA [Suspect]
     Indication: INSULIN-REQUIRING TYPE II DIABETES MELLITUS
     Dosage: 5 UG, 2/D, SUBCUTANEOUS; 10 UG, 2/D, SUBCUTANEOUS; 10 UG, EACH EVENING, SUBCUTANEOUS
     Route: 058
     Dates: start: 20070201, end: 20070801
  3. BYETTA [Suspect]
     Indication: INSULIN-REQUIRING TYPE II DIABETES MELLITUS
     Dosage: 5 UG, 2/D, SUBCUTANEOUS; 10 UG, 2/D, SUBCUTANEOUS; 10 UG, EACH EVENING, SUBCUTANEOUS
     Route: 058
     Dates: start: 20070801
  4. METFORMIN HCL [Concomitant]
  5. HUMULIN N PEN (INSULIN HUMAN) [Concomitant]
  6. HUMALOG [Concomitant]
  7. DIGOXIN [Concomitant]
  8. ZETIA [Concomitant]
  9. TRICOR [Concomitant]
  10. COREG [Concomitant]
  11. ASPIRIN [Concomitant]

REACTIONS (2)
  - ALOPECIA [None]
  - DRUG INEFFECTIVE [None]
